FAERS Safety Report 5536593-0 (Version None)
Quarter: 2007Q4

REPORT INFORMATION
  Report Type: 
  Country: None (occurrence: None)
  Receive Date: 20071204
  Receipt Date: 20071120
  Transmission Date: 20080405
  Serious: Yes (Death)
  Sender: FDA-Public Use
  Company Number: PHBS2007JP19522

PATIENT
  Age: 78 Year
  Sex: Male

DRUGS (1)
  1. VISUDYNE [Suspect]
     Indication: MACULAR DEGENERATION
     Dosage: 5.2 ML DAILY;IV
     Route: 042
     Dates: start: 20060928, end: 20060928

REACTIONS (3)
  - ALCOHOL USE [None]
  - ASPHYXIA [None]
  - COMPLETED SUICIDE [None]
